FAERS Safety Report 25794128 (Version 1)
Quarter: 2025Q3

REPORT INFORMATION
  Report Type: Spontaneous
  Country: US (occurrence: US)
  Receive Date: 20250912
  Receipt Date: 20250912
  Transmission Date: 20251021
  Serious: No
  Sender: SUNOVION
  Company Number: US-SMPA-2025SPA011431

PATIENT
  Age: 75 Year
  Sex: Female
  Weight: 85.261 kg

DRUGS (2)
  1. GEMTESA [Suspect]
     Active Substance: VIBEGRON
     Indication: Micturition urgency
     Dosage: 75 MG, HS (TAKEN AT 10 OR 11 O^CLOCK AT NIGHT)
     Route: 048
  2. DEMANNOSE [Concomitant]
     Active Substance: DEMANNOSE
     Indication: Prophylaxis urinary tract infection

REACTIONS (2)
  - Weight decreased [Unknown]
  - Therapeutic product effect incomplete [Unknown]
